FAERS Safety Report 9384124 (Version 1)
Quarter: 2013Q3

REPORT INFORMATION
  Report Type: Report from Study
  Country: CA (occurrence: CA)
  Receive Date: 20130705
  Receipt Date: 20130705
  Transmission Date: 20140515
  Serious: Yes (Other)
  Sender: FDA-Public Use
  Company Number: CA-JNJFOC-20130620349

PATIENT
  Age: 24 Year
  Sex: Female
  Weight: 60.1 kg

DRUGS (4)
  1. REMICADE [Suspect]
     Indication: CROHN^S DISEASE
     Route: 042
     Dates: start: 20081216
  2. ACETAMINOPHEN [Concomitant]
     Indication: PREMEDICATION
     Route: 048
  3. HYDROCORTISONE [Concomitant]
     Indication: PREMEDICATION
     Route: 042
  4. AERIUS [Concomitant]
     Indication: PREMEDICATION
     Route: 048

REACTIONS (2)
  - Syncope [Recovered/Resolved]
  - Stress [Recovered/Resolved]
